FAERS Safety Report 10480605 (Version 1)
Quarter: 2014Q3

REPORT INFORMATION
  Report Type: Spontaneous
  Country: US (occurrence: None)
  Receive Date: 20140926
  Receipt Date: 20140926
  Transmission Date: 20150326
  Serious: Yes (Other)
  Sender: FDA-Public Use
  Company Number: None

PATIENT
  Age: 36 Year
  Sex: Female
  Weight: 53.07 kg

DRUGS (1)
  1. LEVAQUIN [Suspect]
     Active Substance: LEVOFLOXACIN
     Indication: SINUSITIS
     Route: 048
     Dates: start: 20140922, end: 20140922

REACTIONS (5)
  - Panic reaction [None]
  - Mania [None]
  - Disorientation [None]
  - Psychotic disorder [None]
  - Confusional state [None]

NARRATIVE: CASE EVENT DATE: 20140922
